FAERS Safety Report 14068163 (Version 4)
Quarter: 2020Q4

REPORT INFORMATION
  Report Type: Report from Study
  Country: HU (occurrence: HU)
  Receive Date: 20171010
  Receipt Date: 20201007
  Transmission Date: 20210113
  Serious: Yes (Hospitalization)
  Sender: FDA-Public Use
  Company Number: HU-ROCHE-2004266

PATIENT
  Age: 66 Year
  Sex: Male
  Weight: 95 kg

DRUGS (27)
  1. METHYLPREDNISOLONE. [Concomitant]
     Active Substance: METHYLPREDNISOLONE
     Indication: HYPOTONIA
     Route: 042
     Dates: start: 20171004, end: 20171004
  2. GLICLAZIDE [Concomitant]
     Active Substance: GLICLAZIDE
     Indication: TYPE 2 DIABETES MELLITUS
     Dates: end: 20171001
  3. LERCANIDIPINE [Concomitant]
     Active Substance: LERCANIDIPINE
     Indication: HYPERTENSION
     Dates: end: 20171001
  4. RILMENIDINE [Concomitant]
     Active Substance: RILMENIDINE
     Indication: HYPERTENSION
     Dates: end: 20171001
  5. CALCIUM GLUCONATE. [Concomitant]
     Active Substance: CALCIUM GLUCONATE
     Dates: start: 20171004, end: 20171013
  6. METHYLPREDNISOLONE ACEPONATE [Concomitant]
     Active Substance: METHYLPREDNISOLONE ACEPONATE
     Indication: PHOTOSENSITIVITY REACTION
     Dosage: 1 OTHER
     Route: 061
     Dates: start: 20171004, end: 20171013
  7. DAPAGLIFLOZIN. [Concomitant]
     Active Substance: DAPAGLIFLOZIN
     Indication: TYPE 2 DIABETES MELLITUS
     Dates: end: 20171001
  8. VILDAGLIPTIN [Concomitant]
     Active Substance: VILDAGLIPTIN
     Indication: TYPE 2 DIABETES MELLITUS
     Dates: start: 20171013
  9. VALSARTAN. [Concomitant]
     Active Substance: VALSARTAN
     Indication: HYPERTENSION
     Dates: end: 20171001
  10. CARVEDILOL. [Concomitant]
     Active Substance: CARVEDILOL
     Dates: start: 20171004, end: 20171028
  11. ACETYLSALICYLIC ACID [Concomitant]
     Active Substance: ASPIRIN
     Dates: start: 20171004
  12. COBIMETINIB. [Suspect]
     Active Substance: COBIMETINIB
     Indication: MALIGNANT MELANOMA
     Dosage: MOST RECENT DOSE PRIOR TO MUSCULAR WEAKNESS AND LETHARGY ON 03/OCT/2017
     Route: 048
     Dates: start: 20170919
  13. VALSARTAN. [Concomitant]
     Active Substance: VALSARTAN
     Dates: start: 20171013, end: 20171018
  14. RILMENIDINE [Concomitant]
     Active Substance: RILMENIDINE
     Dates: start: 20171013, end: 20171018
  15. CARVEDILOL. [Concomitant]
     Active Substance: CARVEDILOL
     Indication: HYPERTENSION
     Dates: end: 20171001
  16. DAPAGLIFLOZIN. [Concomitant]
     Active Substance: DAPAGLIFLOZIN
     Dates: end: 20171004
  17. HYDROCHLOROTHIAZIDE. [Concomitant]
     Active Substance: HYDROCHLOROTHIAZIDE
     Dates: start: 20171013
  18. GLICLAZIDE [Concomitant]
     Active Substance: GLICLAZIDE
     Indication: TYPE 2 DIABETES MELLITUS
     Dates: start: 20171004
  19. HYDROCHLOROTHIAZIDE. [Concomitant]
     Active Substance: HYDROCHLOROTHIAZIDE
     Indication: HYPERTENSION
     Dates: end: 20171001
  20. DOXAZOSIN [Concomitant]
     Active Substance: DOXAZOSIN MESYLATE
     Indication: HYPERTENSION
     Dates: end: 20171001
  21. CALCIUM DOBESILATE [Concomitant]
     Active Substance: CALCIUM DOBESILATE
     Indication: HYPERTENSION
     Dates: end: 20171001
  22. DOXAZOSIN [Concomitant]
     Active Substance: DOXAZOSIN MESYLATE
     Dates: start: 20171013
  23. RINGER LACTATE B. BRAUN [Concomitant]
     Indication: HYPOVOLAEMIA
     Dates: start: 20171004, end: 20171013
  24. VEMURAFENIB. [Suspect]
     Active Substance: VEMURAFENIB
     Indication: MALIGNANT MELANOMA
     Dosage: MOST RECENT DOSE PRIOR TO MUSCULAR WEAKNESS AND LETHARGY ON 03/OCT/2017
     Route: 048
     Dates: start: 20170919
  25. METFORMIN [Concomitant]
     Active Substance: METFORMIN HYDROCHLORIDE
     Indication: TYPE 2 DIABETES MELLITUS
     Dates: start: 20171013
  26. ASA [Concomitant]
     Active Substance: ASPIRIN
     Dates: end: 20171001
  27. KCL [Concomitant]
     Active Substance: POTASSIUM CHLORIDE
     Dates: start: 20171004, end: 20171013

REACTIONS (4)
  - Lethargy [Recovered/Resolved]
  - Muscular weakness [Recovered/Resolved]
  - Hyponatraemia [Recovered/Resolved]
  - Hypotension [Recovered/Resolved]

NARRATIVE: CASE EVENT DATE: 20170926
